FAERS Safety Report 5667762-7 (Version None)
Quarter: 2008Q1

REPORT INFORMATION
  Report Type: 
  Country: None (occurrence: None)
  Receive Date: 20080315
  Receipt Date: 20080130
  Transmission Date: 20080703
  Serious: No
  Sender: FDA-Public Use
  Company Number: US-ABBOTT-08P-163-0436051-00

PATIENT
  Sex: Female
  Weight: 59.02 kg

DRUGS (7)
  1. HUMIRA [Suspect]
     Indication: CROHN'S DISEASE
     Route: 058
     Dates: start: 20080102, end: 20080102
  2. HUMIRA [Suspect]
     Route: 058
     Dates: start: 20080116, end: 20080116
  3. HUMIRA [Suspect]
     Route: 058
     Dates: start: 20080130
  4. PREDNISONE [Concomitant]
     Indication: CROHN'S DISEASE
  5. HEART MEDICATIONS [Concomitant]
     Indication: CARDIAC OPERATION
  6. CIPROFLOXACIN [Concomitant]
     Indication: ANTIBIOTIC PROPHYLAXIS
  7. DETROL LA [Concomitant]
     Indication: URINARY INCONTINENCE

REACTIONS (7)
  - CONSTIPATION [None]
  - HAEMATOCHEZIA [None]
  - INJECTION SITE ERYTHEMA [None]
  - INJECTION SITE PRURITUS [None]
  - INJECTION SITE URTICARIA [None]
  - INJECTION SITE WARMTH [None]
  - NAUSEA [None]
